FAERS Safety Report 18886956 (Version 1)
Quarter: 2021Q1

REPORT INFORMATION
  Report Type: Spontaneous
  Country: DE (occurrence: DE)
  Receive Date: 20210212
  Receipt Date: 20210212
  Transmission Date: 20210420
  Serious: Yes (Life-Threatening)
  Sender: FDA-Public Use
  Company Number: DE-TEVA-2021-DE-1867744

PATIENT
  Age: 52 Year
  Sex: Male
  Weight: 100 kg

DRUGS (3)
  1. RAMIPRIL 10 MG [Suspect]
     Active Substance: RAMIPRIL
     Indication: HYPERTENSION
     Dosage: 5 MG INITIAL INTAKE
     Route: 048
     Dates: start: 20201223, end: 20201223
  2. LORATADIN 10 MG [Concomitant]
     Dosage: 10 MILLIGRAM DAILY; AT NIGHT, TAKEN MORE OFTEN RECENTLY
  3. ASPIRINE BRAUSETABLETTEN [Concomitant]
     Indication: HEADACHE
     Dosage: 40 MG
     Route: 048
     Dates: start: 20201223, end: 20201223

REACTIONS (3)
  - Dyspnoea [Recovered/Resolved]
  - Hypersensitivity [Recovered/Resolved]
  - Pharyngeal swelling [Recovered/Resolved]

NARRATIVE: CASE EVENT DATE: 20201223
